FAERS Safety Report 13335966 (Version 1)
Quarter: 2017Q1

REPORT INFORMATION
  Report Type: Spontaneous
  Country: US (occurrence: US)
  Receive Date: 20170315
  Receipt Date: 20170315
  Transmission Date: 20170428
  Serious: No
  Sender: FDA-Public Use
  Company Number: US-TAKEDA-2017MPI001814

PATIENT
  Sex: Male
  Weight: 103.8 kg

DRUGS (1)
  1. NINLARO [Suspect]
     Active Substance: IXAZOMIB
     Indication: PLASMA CELL MYELOMA
     Dosage: UNK
     Route: 048

REACTIONS (7)
  - Hallucination [Unknown]
  - Fatigue [Unknown]
  - Platelet count decreased [Unknown]
  - Decreased appetite [Unknown]
  - Back pain [Unknown]
  - Accidental overdose [Unknown]
  - Hypersomnia [Unknown]
